FAERS Safety Report 13708191 (Version 1)
Quarter: 2017Q2

REPORT INFORMATION
  Report Type: Report from Study
  Country: US (occurrence: US)
  Receive Date: 20170630
  Receipt Date: 20170630
  Transmission Date: 20170830
  Serious: Yes (Death, Other)
  Sender: FDA-Public Use
  Company Number: US-GILEAD-2017-0280742

PATIENT
  Age: 62 Year
  Sex: Male

DRUGS (1)
  1. TENOFOVIR ALAFENAMIDE [Suspect]
     Active Substance: TENOFOVIR ALAFENAMIDE
     Indication: CHRONIC HEPATITIS B
     Dosage: 25 MG, UNK
     Route: 048
     Dates: end: 20170608

REACTIONS (1)
  - Death [Fatal]

NARRATIVE: CASE EVENT DATE: 20170608
